FAERS Safety Report 10803305 (Version 3)
Quarter: 2018Q1

REPORT INFORMATION
  Report Type: Spontaneous
  Country: FR (occurrence: FR)
  Receive Date: 20150217
  Receipt Date: 20180104
  Transmission Date: 20180508
  Serious: Yes (Other)
  Sender: FDA-Public Use
  Company Number: FR-009507513-1502FRA006985

PATIENT
  Age: 58 Year
  Sex: Female
  Weight: 80 kg

DRUGS (7)
  1. PARKINANE RETARD [Concomitant]
     Active Substance: TRIHEXYPHENIDYL HYDROCHLORIDE
     Indication: PARKINSON^S DISEASE
     Dosage: UNK
  2. ABILIFY [Suspect]
     Active Substance: ARIPIPRAZOLE
     Indication: MENTAL DISORDER
     Dosage: UNK
     Route: 048
  3. FLUVASTATIN SODIUM. [Suspect]
     Active Substance: FLUVASTATIN SODIUM
     Indication: HYPERCHOLESTEROLAEMIA
     Dosage: 20 MG, IN 24 HOURS
     Route: 048
     Dates: start: 20141027, end: 20141110
  4. FORTZAAR 100 MG/12.5 MG COMPRIME PELLICULE [Suspect]
     Active Substance: HYDROCHLOROTHIAZIDE\LOSARTAN POTASSIUM
     Indication: HYPERTENSION
     Dosage: UNK
     Route: 048
  5. THERALENE [Suspect]
     Active Substance: TRIMEPRAZINE
     Indication: MENTAL DISORDER
     Dosage: UNK
     Route: 048
  6. THERALENE [Suspect]
     Active Substance: TRIMEPRAZINE
     Route: 048
  7. CRESTOR [Concomitant]
     Active Substance: ROSUVASTATIN CALCIUM
     Indication: HYPERCHOLESTEROLAEMIA
     Dosage: UNK
     Dates: end: 20141027

REACTIONS (2)
  - Breast swelling [Recovered/Resolved]
  - Breast pain [Recovered/Resolved]

NARRATIVE: CASE EVENT DATE: 20141029
